FAERS Safety Report 8766164 (Version 1)
Quarter: 2012Q4

REPORT INFORMATION
  Report Type: Report from Study
  Country: AT (occurrence: AT)
  Receive Date: 20120904
  Receipt Date: 20120904
  Transmission Date: 20130627
  Serious: Yes (Hospitalization)
  Sender: FDA-Public Use
  Company Number: AT-ROCHE-1106816

PATIENT

DRUGS (4)
  1. XELODA [Suspect]
     Indication: RECTAL CANCER
     Route: 065
  2. AVASTIN [Suspect]
     Indication: RECTAL CANCER
     Route: 065
  3. IRINOTECAN [Suspect]
     Indication: RECTAL CANCER
  4. OXALIPLATIN [Suspect]
     Indication: RECTAL CANCER

REACTIONS (1)
  - Metastases to liver [Not Recovered/Not Resolved]
